FAERS Safety Report 23896220 (Version 1)
Quarter: 2024Q2

REPORT INFORMATION
  Report Type: Spontaneous
  Country: US (occurrence: US)
  Receive Date: 20240524
  Receipt Date: 20240524
  Transmission Date: 20240716
  Serious: No
  Sender: FDA-Public Use
  Company Number: US-INCYTE CORPORATION-2024IN004663

PATIENT

DRUGS (1)
  1. MONJUVI [Suspect]
     Active Substance: TAFASITAMAB-CXIX
     Dosage: CYCLE 2
     Route: 065

REACTIONS (3)
  - Lymphoedema [Unknown]
  - Oedema peripheral [Unknown]
  - Pain in extremity [Unknown]
